FAERS Safety Report 5054699-X (Version None)
Quarter: 2006Q2

REPORT INFORMATION
  Report Type: 
  Country: None (occurrence: None)
  Receive Date: 20060614
  Receipt Date: 20060224
  Transmission Date: 20061013
  Serious: No
  Sender: FDA-Public Use
  Company Number: US200602005216

PATIENT
  Age: 79 Year
  Sex: Male

DRUGS (4)
  1. CIALIS [Suspect]
     Indication: ERECTILE DYSFUNCTION
     Dosage: 20 MG
     Dates: start: 20060218
  2. LISINOPRIL [Concomitant]
  3. ASA (ASPIRIN (ACETYLSALICYLIC ACID)) CAPSULE [Concomitant]
  4. ZOCOR [Concomitant]

REACTIONS (6)
  - ABDOMINAL PAIN UPPER [None]
  - HEADACHE [None]
  - HICCUPS [None]
  - NAUSEA [None]
  - THERAPEUTIC RESPONSE DECREASED [None]
  - VOMITING PROJECTILE [None]
